FAERS Safety Report 10935242 (Version 1)
Quarter: 2015Q1

REPORT INFORMATION
  Report Type: Spontaneous
  Country: BR (occurrence: BR)
  Receive Date: 20150320
  Receipt Date: 20150320
  Transmission Date: 20150721
  Serious: Yes (Hospitalization)
  Sender: FDA-Public Use
  Company Number: BR-009507513-1503BRA008529

PATIENT
  Age: 21 Year
  Sex: Female
  Weight: 80 kg

DRUGS (2)
  1. MERCILON  CONTI [Suspect]
     Active Substance: DESOGESTREL\ETHINYL ESTRADIOL
     Indication: CONTRACEPTION
     Dosage: 1 DF, QD
     Route: 048
     Dates: start: 200706, end: 2014
  2. MERCILON  CONTI [Suspect]
     Active Substance: DESOGESTREL\ETHINYL ESTRADIOL
     Dosage: 1 DF, QD
     Route: 048
     Dates: start: 201503

REACTIONS (7)
  - Nasal septal operation [Recovered/Resolved]
  - Drug dose omission [Unknown]
  - Blue toe syndrome [Recovered/Resolved]
  - Tonsillectomy [Recovered/Resolved]
  - Endocrine disorder [Not Recovered/Not Resolved]
  - Weight abnormal [Not Recovered/Not Resolved]
  - Ovarian cyst [Not Recovered/Not Resolved]

NARRATIVE: CASE EVENT DATE: 2007
